FAERS Safety Report 7592937-X (Version None)
Quarter: 2011Q3

REPORT INFORMATION
  Report Type: 
  Country: None (occurrence: None)
  Receive Date: 20110706
  Receipt Date: 20110628
  Transmission Date: 20111222
  Serious: Yes (Other)
  Sender: FDA-Public Use
  Company Number: FR-ROCHE-777900

PATIENT
  Age: 59 Year
  Sex: Female
  Weight: 60 kg

DRUGS (1)
  1. XELODA [Suspect]
     Route: 065
     Dates: start: 20090101

REACTIONS (2)
  - MELANOCYTIC NAEVUS [None]
  - SKIN HYPERPIGMENTATION [None]
